FAERS Safety Report 8062783-1 (Version None)
Quarter: 2012Q1

REPORT INFORMATION
  Report Type: 
  Country: None (occurrence: None)
  Receive Date: 20120123
  Receipt Date: 20120111
  Transmission Date: 20120608
  Serious: Yes (Other)
  Sender: FDA-Public Use
  Company Number: US-ELI_LILLY_AND_COMPANY-US201201004032

PATIENT
  Age: 72 Year
  Sex: Female

DRUGS (6)
  1. CYMBALTA [Suspect]
     Dosage: 60 MG, QD
  2. CYMBALTA [Suspect]
     Indication: PAIN
     Dosage: 30 MG, QD
  3. OXYCONTIN [Concomitant]
     Indication: PAIN
  4. CYMBALTA [Suspect]
     Dosage: 90 MG, QD
  5. OPANA [Concomitant]
     Indication: PAIN
     Dosage: UNK
  6. CYMBALTA [Suspect]
     Dosage: 60 MG, QD

REACTIONS (6)
  - RASH MACULAR [None]
  - BLOOD GASTRIN INCREASED [None]
  - DIARRHOEA [None]
  - STOMATITIS [None]
  - STEVENS-JOHNSON SYNDROME [None]
  - ORAL PAIN [None]
